FAERS Safety Report 9281320 (Version 1)
Quarter: 2013Q2

REPORT INFORMATION
  Report Type: Spontaneous
  Country: US (occurrence: US)
  Receive Date: 20130509
  Receipt Date: 20130509
  Transmission Date: 20140414
  Serious: Yes (Other)
  Sender: FDA-Public Use
  Company Number: US-BRISTOL-MYERS SQUIBB COMPANY-18862144

PATIENT
  Age: 53 Year
  Sex: Male
  Weight: 93.87 kg

DRUGS (5)
  1. ABILIFY [Suspect]
     Indication: SCHIZOPHRENIA
     Dosage: 1DF: 10MG OR 20MG
  2. ABILIFY [Suspect]
     Indication: AFFECTIVE DISORDER
     Dosage: 1DF: 10MG OR 20MG
  3. ABILIFY [Suspect]
     Indication: BIPOLAR DISORDER
     Dosage: 1DF: 10MG OR 20MG
  4. PROLIXIN [Suspect]
  5. LITHIUM [Suspect]

REACTIONS (2)
  - Loss of consciousness [Unknown]
  - Confusional state [Unknown]
